FAERS Safety Report 23790297 (Version 1)
Quarter: 2024Q2

REPORT INFORMATION
  Report Type: Spontaneous
  Country: US (occurrence: US)
  Receive Date: 20240427
  Receipt Date: 20240427
  Transmission Date: 20240716
  Serious: No
  Sender: FDA-Public Use
  Company Number: US-TEVA-VS-3171312

PATIENT
  Sex: Male

DRUGS (1)
  1. FLUTICASONE PROPIONATE\SALMETEROL XINAFOATE [Suspect]
     Active Substance: FLUTICASONE PROPIONATE\SALMETEROL XINAFOATE
     Indication: Upper respiratory tract infection
     Dosage: 113MCG/14MCG
     Route: 055
     Dates: start: 20240308

REACTIONS (2)
  - Respiration abnormal [Unknown]
  - Drug ineffective [Unknown]
